FAERS Safety Report 18505239 (Version 1)
Quarter: 2020Q4

REPORT INFORMATION
  Report Type: Other
  Country: IL (occurrence: IL)
  Receive Date: 20201116
  Receipt Date: 20201116
  Transmission Date: 20210114
  Serious: Yes (Other)
  Sender: FDA-Public Use
  Company Number: IL-ROCHE-2707796

PATIENT

DRUGS (9)
  1. THIOTEPA. [Concomitant]
     Active Substance: THIOTEPA
  2. IFOSFAMIDE. [Concomitant]
     Active Substance: IFOSFAMIDE
  3. CARMUSTINE. [Concomitant]
     Active Substance: CARMUSTINE
  4. METHOTREXATE. [Suspect]
     Active Substance: METHOTREXATE
     Indication: CENTRAL NERVOUS SYSTEM LYMPHOMA
     Route: 065
  5. PROCARBAZINE [Concomitant]
     Active Substance: PROCARBAZINE
  6. RITUXIMAB. [Suspect]
     Active Substance: RITUXIMAB
     Indication: CENTRAL NERVOUS SYSTEM LYMPHOMA
     Route: 065
  7. CYTARABINE. [Concomitant]
     Active Substance: CYTARABINE
  8. ETOPOSIDE. [Concomitant]
     Active Substance: ETOPOSIDE
  9. TEMOZOLOMIDE. [Concomitant]
     Active Substance: TEMOZOLOMIDE

REACTIONS (9)
  - Nephropathy toxic [Unknown]
  - Thrombophlebitis superficial [Unknown]
  - Urinary tract infection [Unknown]
  - Meningitis enterococcal [Unknown]
  - Deep vein thrombosis [Unknown]
  - Pulmonary embolism [Unknown]
  - Cytomegalovirus infection [Unknown]
  - Bacteraemia [Unknown]
  - Haematotoxicity [Unknown]
